FAERS Safety Report 8525008-6 (Version None)
Quarter: 2012Q3

REPORT INFORMATION
  Report Type: 
  Country: None (occurrence: None)
  Receive Date: 20120720
  Receipt Date: 20120711
  Transmission Date: 20120928
  Serious: Yes (Other)
  Sender: FDA-Public Use
  Company Number: US-JNJFOC-20120707111

PATIENT
  Age: 78 Year
  Sex: Female

DRUGS (3)
  1. TYLENOL (CAPLET) [Suspect]
     Indication: HEADACHE
     Route: 048
  2. LEVOXYL [Concomitant]
     Indication: THYROID DISORDER
     Route: 065
  3. MULTI-VITAMINS [Concomitant]
     Indication: NUTRITIONAL SUPPORT
     Route: 065

REACTIONS (1)
  - TINNITUS [None]
